FAERS Safety Report 7232318-1 (Version None)
Quarter: 2011Q1

REPORT INFORMATION
  Report Type: 
  Country: None (occurrence: None)
  Receive Date: 20110106
  Receipt Date: 20101228
  Transmission Date: 20110831
  Serious: Yes (Death, Life-Threatening)
  Sender: FDA-Public Use
  Company Number: OMPQ-NO-1012S-1093

PATIENT
  Age: 62 Year
  Sex: Male

DRUGS (1)
  1. OMNIPAQUE 70 [Suspect]
     Indication: PRODUCT USED FOR UNKNOWN INDICATION
     Dosage: 40 ML, SINGLE DOSE, I.V.
     Route: 042
     Dates: start: 20101224, end: 20101224

REACTIONS (8)
  - ANAPHYLACTIC REACTION [None]
  - CARDIAC ARREST [None]
  - CONDITION AGGRAVATED [None]
  - ACUTE RESPIRATORY DISTRESS SYNDROME [None]
  - CHILLS [None]
  - RESPIRATORY FAILURE [None]
  - CONTRAST MEDIA ALLERGY [None]
  - HYPOTENSION [None]
